FAERS Safety Report 5242859-4 (Version None)
Quarter: 2007Q1

REPORT INFORMATION
  Report Type: 
  Country: None (occurrence: None)
  Receive Date: 20070221
  Receipt Date: 20070216
  Transmission Date: 20070707
  Serious: Yes (Death, Other)
  Sender: FDA-Public Use
  Company Number: US-PURDUE-USA_2007_0026526

PATIENT
  Age: 50 Year
  Sex: Male

DRUGS (2)
  1. OXYCONTIN [Suspect]
     Indication: DRUG ABUSER
     Dosage: UNK MG, UNK
  2. ALCOHOL [Suspect]
     Indication: DRUG ABUSER
     Dosage: UNK, UNK

REACTIONS (2)
  - CARDIAC FAILURE [None]
  - DRUG TOXICITY [None]
